FAERS Safety Report 4539400-8 (Version None)
Quarter: 2004Q4

REPORT INFORMATION
  Report Type: 
  Country: None (occurrence: None)
  Receive Date: 20041228
  Receipt Date: 20041130
  Transmission Date: 20050328
  Serious: Yes (Other)
  Sender: FDA-Public Use
  Company Number: AU-ROCHE-387794

PATIENT
  Age: 58 Year
  Sex: Male

DRUGS (11)
  1. CELLCEPT [Suspect]
     Route: 048
  2. SIMULECT [Suspect]
     Route: 065
  3. NEORAL [Suspect]
     Route: 048
  4. TACROLIMUS [Suspect]
     Route: 048
  5. PREDNISOLONE [Concomitant]
  6. DILTIAZEM HYDROCHLORIDE [Concomitant]
  7. ASPIRIN [Concomitant]
  8. RANITIDINE [Concomitant]
  9. AMPHOTERICIN B [Concomitant]
     Dosage: LOZENGES
  10. CALCITRIOL [Concomitant]
  11. TRIMETHOPRIM-SULFAMETHOXAZOLE [Concomitant]

REACTIONS (13)
  - BILE DUCT OBSTRUCTION [None]
  - BLOOD ALKALINE PHOSPHATASE INCREASED [None]
  - BLOOD BILIRUBIN INCREASED [None]
  - CHOLELITHIASIS [None]
  - GAMMA-GLUTAMYLTRANSFERASE INCREASED [None]
  - HAEMATEMESIS [None]
  - HYPOALBUMINAEMIA [None]
  - ILEUS PARALYTIC [None]
  - JAUNDICE [None]
  - MALLORY-WEISS SYNDROME [None]
  - NAUSEA [None]
  - PANCYTOPENIA [None]
  - VOMITING [None]
